FAERS Safety Report 23719676 (Version 1)
Quarter: 2024Q2

REPORT INFORMATION
  Report Type: Spontaneous
  Country: NL (occurrence: NL)
  Receive Date: 20240408
  Receipt Date: 20240408
  Transmission Date: 20240715
  Serious: Yes (Other)
  Sender: FDA-Public Use
  Company Number: NL-009507513-2404NLD001565

PATIENT
  Age: 57 Year
  Sex: Female

DRUGS (1)
  1. TEMOZOLOMIDE [Suspect]
     Active Substance: TEMOZOLOMIDE
     Indication: Glioblastoma
     Dosage: UNK

REACTIONS (22)
  - Dysmetria [Unknown]
  - Hemiparesis [Unknown]
  - Depression [Unknown]
  - Anxiety [Unknown]
  - Sensory loss [Unknown]
  - Mobility decreased [Unknown]
  - Muscular weakness [Unknown]
  - Balance disorder [Unknown]
  - Ataxia [Unknown]
  - Extrapyramidal disorder [Unknown]
  - Fatigue [Unknown]
  - Migraine [Unknown]
  - Vomiting [Unknown]
  - Nausea [Unknown]
  - Weight decreased [Unknown]
  - Alopecia [Unknown]
  - Gastrooesophageal reflux disease [Unknown]
  - Extrapyramidal disorder [Unknown]
  - Malnutrition [Unknown]
  - Muscle tightness [Unknown]
  - Hypoaesthesia [Unknown]
  - Oedema [Unknown]
